FAERS Safety Report 9618843 (Version 1)
Quarter: 2013Q4

REPORT INFORMATION
  Report Type: Spontaneous
  Country: AU (occurrence: AU)
  Receive Date: 20131014
  Receipt Date: 20131014
  Transmission Date: 20140711
  Serious: Yes (Other)
  Sender: FDA-Public Use
  Company Number: AU-MYLANLABS-2013S1022155

PATIENT
  Age: 32 Year
  Sex: Female

DRUGS (3)
  1. DOXEPIN [Suspect]
     Dosage: 250MG NOCTE
     Route: 065
  2. SODIUM VALPROATE [Interacting]
     Route: 065
  3. LAMOTRIGINE [Concomitant]
     Route: 065

REACTIONS (2)
  - Convulsion [Recovered/Resolved]
  - Drug interaction [Recovered/Resolved]
